FAERS Safety Report 19008249 (Version 1)
Quarter: 2021Q1

REPORT INFORMATION
  Report Type: Spontaneous
  Country: US (occurrence: US)
  Receive Date: 20210316
  Receipt Date: 20210316
  Transmission Date: 20210420
  Serious: No
  Sender: FDA-Public Use
  Company Number: US-GLAXOSMITHKLINE-USCH2021012956

PATIENT
  Age: 53 Year
  Sex: Male

DRUGS (2)
  1. NICODERM CQ [Suspect]
     Active Substance: NICOTINE
     Dosage: UNK
  2. NICODERM CQ [Suspect]
     Active Substance: NICOTINE
     Indication: PRODUCT USED FOR UNKNOWN INDICATION
     Dates: start: 20210309, end: 20210310

REACTIONS (4)
  - Application site burn [Unknown]
  - Application site erythema [Unknown]
  - Application site vesicles [Unknown]
  - Skin fissures [Unknown]

NARRATIVE: CASE EVENT DATE: 20210309
